FAERS Safety Report 25613703 (Version 1)
Quarter: 2025Q3

REPORT INFORMATION
  Report Type: Spontaneous
  Country: US (occurrence: US)
  Receive Date: 20250728
  Receipt Date: 20250728
  Transmission Date: 20251021
  Serious: Yes (Death)
  Sender: TAIHO ONCOLOGY INC
  Company Number: US-TAIHOP-2025-007835

PATIENT
  Sex: Male
  Weight: 75.3 kg

DRUGS (1)
  1. LONSURF [Suspect]
     Active Substance: TIPIRACIL HYDROCHLORIDE\TRIFLURIDINE
     Indication: Rectal cancer
     Dosage: STRENGTH: 15 MG AND 20 MG.?CYCLE: UNKNOWN
     Route: 048

REACTIONS (1)
  - Death [Fatal]
